FAERS Safety Report 4846622-5 (Version None)
Quarter: 2005Q4

REPORT INFORMATION
  Report Type: 
  Country: None (occurrence: None)
  Receive Date: 20051206
  Receipt Date: 20051128
  Transmission Date: 20060501
  Serious: Yes (Other)
  Sender: FDA-Public Use
  Company Number: PHBS2005JP17862

PATIENT
  Age: 84 Year
  Sex: Male

DRUGS (2)
  1. DIOVAN [Suspect]
     Dosage: 20 MG, QD
     Route: 048
     Dates: start: 20030801, end: 20030801
  2. DIOVAN [Suspect]
     Route: 048
     Dates: start: 20030801, end: 20031001

REACTIONS (1)
  - LIVER DISORDER [None]
